FAERS Safety Report 25458791 (Version 1)
Quarter: 2025Q2

REPORT INFORMATION
  Report Type: Spontaneous
  Country: DZ (occurrence: DZ)
  Receive Date: 20250620
  Receipt Date: 20250620
  Transmission Date: 20250717
  Serious: Yes (Death, Other)
  Sender: BIOVITRUM
  Company Number: DZ-BIOVITRUM-2025-DZ-008595

PATIENT
  Age: 7 Year
  Sex: Female

DRUGS (1)
  1. ANAKINRA [Suspect]
     Active Substance: ANAKINRA
     Indication: Product used for unknown indication
     Route: 042

REACTIONS (4)
  - Immune system disorder [Fatal]
  - Systemic lupus erythematosus [Unknown]
  - Pyrexia [Unknown]
  - Off label use [Unknown]
